FAERS Safety Report 20516047 (Version 2)
Quarter: 2022Q4

REPORT INFORMATION
  Report Type: Spontaneous
  Country: US (occurrence: None)
  Receive Date: 20220225
  Receipt Date: 20221117
  Transmission Date: 20230113
  Serious: No
  Sender: FDA-Public Use
  Company Number: US-Merck Healthcare KGaA-9299539

PATIENT
  Sex: Male

DRUGS (3)
  1. SEROSTIM [Suspect]
     Active Substance: SOMATROPIN
     Indication: HIV infection
     Route: 058
     Dates: start: 201608, end: 202202
  2. SEROSTIM [Suspect]
     Active Substance: SOMATROPIN
     Dosage: DOSE REDUCED
     Route: 058
     Dates: start: 202202
  3. HUMIRA [Concomitant]
     Active Substance: ADALIMUMAB
     Indication: Product used for unknown indication

REACTIONS (2)
  - Weight decreased [Unknown]
  - Drug ineffective [Unknown]
